FAERS Safety Report 24095001 (Version 3)
Quarter: 2024Q4

REPORT INFORMATION
  Report Type: Report from Study
  Country: US (occurrence: US)
  Receive Date: 20240716
  Receipt Date: 20241115
  Transmission Date: 20250115
  Serious: Yes (Other)
  Sender: CSL BEHRING
  Company Number: US-BEH-2024175702

PATIENT
  Age: 28 Year
  Sex: Female
  Weight: 59.3 kg

DRUGS (3)
  1. BERINERT [Suspect]
     Active Substance: HUMAN C1-ESTERASE INHIBITOR
     Dosage: 3600 IU/KG, BIW
     Route: 058
  2. BERINERT [Suspect]
     Active Substance: HUMAN C1-ESTERASE INHIBITOR
     Indication: Hereditary angioedema
     Dosage: 3000 IU/KG, BIW
     Route: 058
     Dates: start: 20241104
  3. BERINERT [Suspect]
     Active Substance: HUMAN C1-ESTERASE INHIBITOR
     Indication: Prophylaxis

REACTIONS (2)
  - Maternal exposure during pregnancy [Unknown]
  - Hereditary angioedema [Recovering/Resolving]

NARRATIVE: CASE EVENT DATE: 20241104
